FAERS Safety Report 7617491-5 (Version None)
Quarter: 2011Q3

REPORT INFORMATION
  Report Type: 
  Country: None (occurrence: None)
  Receive Date: 20110718
  Receipt Date: 20110627
  Transmission Date: 20111222
  Serious: No
  Sender: FDA-Public Use
  Company Number: US-PFIZER INC-2011143988

PATIENT
  Age: 72 Year
  Sex: Female

DRUGS (2)
  1. METHADONE HCL [Suspect]
     Indication: MIGRAINE
     Dosage: UNK
  2. MORPHINE SULFATE [Suspect]
     Indication: MIGRAINE
     Dosage: UNK

REACTIONS (1)
  - DRUG INEFFECTIVE [None]
